FAERS Safety Report 19748364 (Version 1)
Quarter: 2021Q3

REPORT INFORMATION
  Report Type: Spontaneous
  Country: FR (occurrence: FR)
  Receive Date: 20210825
  Receipt Date: 20210825
  Transmission Date: 20211014
  Serious: Yes (Hospitalization)
  Sender: FDA-Public Use
  Company Number: FR-BAXTER-2021BAX025917

PATIENT
  Sex: Female
  Weight: 1.16 kg

DRUGS (2)
  1. HOLOXAN 2000 MG, POUDRE POUR USAGE PARENTERAL [Suspect]
     Active Substance: IFOSFAMIDE
     Indication: SARCOMA
     Dosage: 4 TREATMENTS
     Route: 064
     Dates: start: 20200324, end: 20200604
  2. DOXIL [Suspect]
     Active Substance: DOXORUBICIN HYDROCHLORIDE
     Indication: SARCOMA
     Dosage: 4 TREATMENTS
     Route: 064
     Dates: start: 20200323, end: 20200602

REACTIONS (3)
  - Anaemia [Recovered/Resolved]
  - Premature baby [Recovered/Resolved]
  - Growth retardation [Recovered/Resolved]

NARRATIVE: CASE EVENT DATE: 20200606
